FAERS Safety Report 6369378-6 (Version None)
Quarter: 2009Q3

REPORT INFORMATION
  Report Type: 
  Country: None (occurrence: None)
  Receive Date: 20090917
  Receipt Date: 20090901
  Transmission Date: 20100115
  Serious: Yes (Life-Threatening, Hospitalization, Other)
  Sender: FDA-Public Use
  Company Number: APP200900519

PATIENT
  Age: 56 Year
  Sex: Male
  Weight: 94.3 kg

DRUGS (30)
  1. HEPARIN SODIUM INJECTION [Suspect]
     Indication: DRUG USE FOR UNKNOWN INDICATION
     Dosage: 5000 USP UNITS, 3 IN 1 D,; 1 IN 1 D,
     Dates: start: 20090710, end: 20090715
  2. HEPARIN SODIUM INJECTION [Suspect]
     Indication: DRUG USE FOR UNKNOWN INDICATION
     Dosage: 5000 USP UNITS, 3 IN 1 D,; 1 IN 1 D,
     Dates: start: 20090715, end: 20090715
  3. ALEFACEPT (ALEFACEPT) [Suspect]
     Dosage: 7.5 MG, INTRAVENOUS; 15 MG, 1 IN 1 WK, SUBCUTANEOUS
     Dates: start: 20090712, end: 20090712
  4. ALEFACEPT (ALEFACEPT) [Suspect]
     Dosage: 7.5 MG, INTRAVENOUS; 15 MG, 1 IN 1 WK, SUBCUTANEOUS
     Dates: start: 20090716, end: 20090719
  5. PROGRAF [Suspect]
     Dosage: 5 MG, 2 IN 1 D, ORAL; 6 MG, 2 IN 1 D, ORAL; 10 MG, 2 IN 1 D, ORAL
     Route: 048
     Dates: start: 20090724, end: 20090726
  6. PROGRAF [Suspect]
     Dosage: 5 MG, 2 IN 1 D, ORAL; 6 MG, 2 IN 1 D, ORAL; 10 MG, 2 IN 1 D, ORAL
     Route: 048
     Dates: start: 20090726
  7. VALCYTE [Suspect]
     Dosage: 450 MG, 1 IN 3 D
     Dates: start: 20090709
  8. SYNTHROID [Suspect]
     Dosage: 50 MCG, 1 IN 1 D, ORAL
     Route: 048
  9. PLAVIX [Suspect]
     Dosage: 75 MG, 1 IN 1 D, ORAL
     Route: 048
     Dates: start: 20040101
  10. ASPIRIN [Suspect]
     Dosage: 325 MG, 1 IN 1 D,; 81 MG, 1 IN 1 D,
  11. BACTRIM [Suspect]
     Indication: URINARY TRACT INFECTION
     Dosage: 1 DOSAGE FORMS, 1 IN 2 D, ORAL
     Route: 048
     Dates: start: 20090709
  12. PREDNISONE TAB [Concomitant]
  13. AMBIEN [Concomitant]
  14. PRILOSEC [Concomitant]
  15. METOPROLOL (METOPROLOL) [Concomitant]
  16. NORVASC [Concomitant]
  17. LANTUS [Concomitant]
  18. CALCIUM CARBONATE [Concomitant]
  19. DILTIAZEM CD (DILTIAZEM HYDROCHLORIDE) [Concomitant]
  20. FERROUS GLUCONATE (FERROUS GLUCONATE) [Concomitant]
  21. LABETALOL HCL [Concomitant]
  22. NEPHROCAPS (SOLIVITO N /01801401/) [Concomitant]
  23. RENAGEL [Concomitant]
  24. NOVOLOG [Concomitant]
  25. ROSUVASTATIN (ROSUVASTATIN) [Concomitant]
  26. DILAUDID [Concomitant]
  27. DOPAMINE HCL [Concomitant]
  28. AVAPRO [Concomitant]
  29. SOLU-MEDROL (METHYLPREDNISOLOEN SODIUM SUCCINATE) [Concomitant]
  30. HYDRALAZINE HCL [Concomitant]

REACTIONS (9)
  - DRUG RASH WITH EOSINOPHILIA AND SYSTEMIC SYMPTOMS [None]
  - DRUG TOXICITY [None]
  - HAEMOLYTIC ANAEMIA [None]
  - HYPERHIDROSIS [None]
  - KIDNEY TRANSPLANT REJECTION [None]
  - PETECHIAE [None]
  - PYREXIA [None]
  - THROMBOCYTOPENIA [None]
  - TUBULOINTERSTITIAL NEPHRITIS [None]
